FAERS Safety Report 5969174-5 (Version None)
Quarter: 2008Q4

REPORT INFORMATION
  Report Type: 
  Country: None (occurrence: None)
  Receive Date: 20081126
  Receipt Date: 20080818
  Transmission Date: 20090506
  Serious: No
  Sender: FDA-Public Use
  Company Number: US-ABBOTT-08P-163-0471440-00

PATIENT
  Sex: Female
  Weight: 77.18 kg

DRUGS (6)
  1. SIMCOR [Suspect]
     Indication: BLOOD CHOLESTEROL INCREASED
     Dosage: 500/20 MILLIGRAMS
     Route: 048
     Dates: start: 20080801
  2. LEVOTHYROXINE SODIUM [Concomitant]
     Indication: DRUG USE FOR UNKNOWN INDICATION
     Route: 048
  3. LISINOPRIL [Concomitant]
     Indication: HYPERTENSION
     Route: 048
  4. NORGESTIMATE AND ETHINYL ESTRADIOL [Concomitant]
     Indication: DRUG USE FOR UNKNOWN INDICATION
     Route: 062
  5. HORMONE PATCH [Concomitant]
     Indication: DRUG USE FOR UNKNOWN INDICATION
     Route: 062
  6. LEVOTHYROXINE SODIUM [Concomitant]
     Indication: HYPOTHYROIDISM
     Route: 048

REACTIONS (4)
  - ABNORMAL DREAMS [None]
  - INITIAL INSOMNIA [None]
  - MIDDLE INSOMNIA [None]
  - SLEEP DISORDER [None]
